FAERS Safety Report 25742856 (Version 1)
Quarter: 2025Q3

REPORT INFORMATION
  Report Type: Spontaneous
  Country: US (occurrence: US)
  Receive Date: 20250830
  Receipt Date: 20250830
  Transmission Date: 20251020
  Serious: No
  Sender: ELI LILLY AND COMPANY
  Company Number: US-ELI_LILLY_AND_COMPANY-US202508027160

PATIENT
  Age: 22 Year
  Sex: Male

DRUGS (1)
  1. TERIPARATIDE [Suspect]
     Active Substance: TERIPARATIDE
     Indication: Product used for unknown indication
     Route: 065

REACTIONS (5)
  - Abdominal pain upper [Unknown]
  - Diarrhoea [Unknown]
  - Blister [Unknown]
  - Rash [Not Recovered/Not Resolved]
  - Burning sensation [Unknown]
